FAERS Safety Report 24730032 (Version 1)
Quarter: 2024Q4

REPORT INFORMATION
  Report Type: Report from Study
  Country: US (occurrence: US)
  Receive Date: 20241213
  Receipt Date: 20241213
  Transmission Date: 20250115
  Serious: Yes (Hospitalization, Other)
  Sender: ABBVIE
  Company Number: US-ABBVIE-6040576

PATIENT
  Age: 58 Year
  Sex: Female

DRUGS (1)
  1. RESTASIS [Suspect]
     Active Substance: CYCLOSPORINE
     Indication: Product used for unknown indication
     Dosage: FORM STRENGTH: 0.5MG/ML, ONE DROP BOTH EYES TWICE A DAY
     Route: 047

REACTIONS (2)
  - Appendicitis perforated [Unknown]
  - Surgery [Unknown]

NARRATIVE: CASE EVENT DATE: 20240101
